FAERS Safety Report 7197178-6 (Version None)
Quarter: 2010Q4

REPORT INFORMATION
  Report Type: 
  Country: None (occurrence: None)
  Receive Date: 20101224
  Receipt Date: 20101213
  Transmission Date: 20110411
  Serious: Yes (Hospitalization)
  Sender: FDA-Public Use
  Company Number: PHHY2010US78712

PATIENT
  Sex: Male

DRUGS (8)
  1. EXJADE [Suspect]
     Dosage: 1750 MG
     Route: 048
  2. DILAUDID [Concomitant]
  3. ZOLOFT [Concomitant]
     Dosage: 50 MG
  4. HYDROXYUREA [Concomitant]
     Dosage: 500 MG, QD
  5. OXYGEN [Concomitant]
     Indication: HEADACHE
  6. DEPAKOTE [Concomitant]
  7. MS CONTIN [Concomitant]
     Dosage: 60 UNK, Q8H
  8. MORPHINE SULFATE [Concomitant]
     Dosage: 30 UNK, Q4H P.R.N.

REACTIONS (6)
  - CONFUSIONAL STATE [None]
  - FALL [None]
  - HAEMOGLOBIN DECREASED [None]
  - PAIN [None]
  - SICKLE CELL ANAEMIA WITH CRISIS [None]
  - SOMNOLENCE [None]
